FAERS Safety Report 6208739-2 (Version None)
Quarter: 2009Q2

REPORT INFORMATION
  Report Type: 
  Country: None (occurrence: None)
  Receive Date: 20090529
  Receipt Date: 20090521
  Transmission Date: 20091009
  Serious: Yes (Hospitalization, Other)
  Sender: FDA-Public Use
  Company Number: US-ABBOTT-09P-163-0574921-00

PATIENT
  Sex: Female

DRUGS (8)
  1. HUMIRA [Suspect]
     Indication: FISTULA
     Dates: start: 20080601, end: 20081101
  2. HUMIRA [Suspect]
     Route: 058
     Dates: start: 20090513, end: 20090513
  3. GLYBURIDE [Concomitant]
     Indication: DIABETES MELLITUS
  4. IMODIUM [Concomitant]
     Indication: CROHN'S DISEASE
  5. PENTAZA [Concomitant]
     Indication: CROHN'S DISEASE
  6. PRILOSEC [Concomitant]
     Indication: GASTROOESOPHAGEAL REFLUX DISEASE
  7. LEXAPRO [Concomitant]
     Indication: DEPRESSION
  8. VICODIN [Concomitant]
     Indication: PAIN

REACTIONS (7)
  - ABSCESS [None]
  - ARTHRALGIA [None]
  - FISTULA [None]
  - INFECTION [None]
  - JOINT SWELLING [None]
  - PYREXIA [None]
  - VAGINAL FISTULA [None]
